FAERS Safety Report 4784972-1 (Version None)
Quarter: 2005Q3

REPORT INFORMATION
  Report Type: 
  Country: None (occurrence: None)
  Receive Date: 20050930
  Receipt Date: 20050928
  Transmission Date: 20060218
  Serious: Yes (Death)
  Sender: FDA-Public Use
  Company Number: 2005UW14549

PATIENT
  Age: 77 Year
  Sex: Female
  Weight: 54.4 kg

DRUGS (7)
  1. TOPROL-XL [Suspect]
     Indication: CARDIAC FAILURE CONGESTIVE
     Route: 048
     Dates: start: 20040901, end: 20050801
  2. COUMADIN [Concomitant]
  3. METOLAZONE [Concomitant]
  4. LOVASTATIN [Concomitant]
  5. NITROGLYCERIN [Concomitant]
     Route: 062
  6. ASPIRIN [Concomitant]
  7. NEXIUM [Concomitant]
     Route: 048

REACTIONS (3)
  - ACUTE PULMONARY OEDEMA [None]
  - ASTHENIA [None]
  - GALLBLADDER PAIN [None]
